FAERS Safety Report 9965676 (Version 1)
Quarter: 2014Q1

REPORT INFORMATION
  Report Type: Report from Study
  Country: US (occurrence: US)
  Receive Date: 20140305
  Receipt Date: 20140305
  Transmission Date: 20141002
  Serious: No
  Sender: FDA-Public Use
  Company Number: US-ABBVIE-13P-163-1127274-00

PATIENT
  Age: 62 Year
  Sex: Female

DRUGS (11)
  1. HUMIRA [Suspect]
     Indication: CROHN^S DISEASE
     Dates: start: 20130612, end: 20130612
  2. HUMIRA [Suspect]
     Dates: start: 20130626, end: 20130626
  3. HUMIRA [Suspect]
  4. DIOVAN [Concomitant]
     Indication: HYPERTENSION
     Dosage: 160 MG DAILY
  5. 6-MP [Concomitant]
     Indication: PRODUCT USED FOR UNKNOWN INDICATION
     Dosage: 50 MG DAILY
  6. MESALAMINE [Concomitant]
     Indication: CROHN^S DISEASE
  7. HYDROCHLOROTHIAZIDE [Concomitant]
     Indication: PRODUCT USED FOR UNKNOWN INDICATION
     Dosage: 25 MG DAILY
  8. KATOWICE [Concomitant]
     Indication: HYPERTENSION
     Dosage: 10/20
  9. TRAZODONE [Concomitant]
     Indication: PRODUCT USED FOR UNKNOWN INDICATION
     Dosage: 50 MG DAILY
  10. NOVALOG [Concomitant]
     Indication: DIABETES MELLITUS
     Dosage: FOR INSULIN PUMP
  11. SUPPLEMENTS [Concomitant]
     Indication: PRODUCT USED FOR UNKNOWN INDICATION

REACTIONS (2)
  - Nervousness [Unknown]
  - Injection site pain [Recovered/Resolved]
